FAERS Safety Report 7359461-0 (Version None)
Quarter: 2011Q1

REPORT INFORMATION
  Report Type: 
  Country: None (occurrence: None)
  Receive Date: 20110317
  Receipt Date: 20091202
  Transmission Date: 20110831
  Serious: No
  Sender: FDA-Public Use
  Company Number: US-PFIZER INC-2009276160

PATIENT
  Sex: Female
  Weight: 65.317 kg

DRUGS (2)
  1. NORVASC [Suspect]
     Indication: HYPERTENSION
     Dosage: 5 MG, 2X/DAY
     Dates: start: 19990101
  2. AMLODIPINE BESYLATE [Suspect]
     Indication: HYPERTENSION
     Dosage: 5 MG, 2X/DAY
     Dates: start: 19960101

REACTIONS (6)
  - ASTHMA [None]
  - BLOOD PRESSURE INCREASED [None]
  - DRUG HYPERSENSITIVITY [None]
  - WEIGHT DECREASED [None]
  - INSOMNIA [None]
  - ABDOMINAL DISCOMFORT [None]
